FAERS Safety Report 8109324-8 (Version None)
Quarter: 2012Q1

REPORT INFORMATION
  Report Type: 
  Country: None (occurrence: None)
  Receive Date: 20120202
  Receipt Date: 20120109
  Transmission Date: 20120608
  Serious: No
  Sender: FDA-Public Use
  Company Number: US-AMGEN-USASP2011068307

PATIENT
  Age: 46 Year
  Sex: Female

DRUGS (1)
  1. ENBREL [Suspect]
     Indication: PSORIASIS
     Dosage: 50 MG, QWK
     Dates: start: 20110601, end: 20111210

REACTIONS (9)
  - RESPIRATORY TRACT CONGESTION [None]
  - PRODUCTIVE COUGH [None]
  - DYSPNOEA [None]
  - PAIN [None]
  - SINUS CONGESTION [None]
  - MALAISE [None]
  - EAR PAIN [None]
  - SINUSITIS [None]
  - NASOPHARYNGITIS [None]
